FAERS Safety Report 5667112-6 (Version None)
Quarter: 2008Q1

REPORT INFORMATION
  Report Type: 
  Country: None (occurrence: None)
  Receive Date: 20080315
  Receipt Date: 20080109
  Transmission Date: 20080703
  Serious: Yes (Other)
  Sender: FDA-Public Use
  Company Number: US-ABBOTT-08P-163-0433141-00

PATIENT
  Age: 52 Year
  Sex: Female
  Weight: 85.806 kg

DRUGS (4)
  1. HUMIRA [Suspect]
     Indication: RHEUMATOID ARTHRITIS
     Route: 058
     Dates: start: 20040801, end: 20070901
  2. METHOTREXATE [Concomitant]
     Indication: RHEUMATOID ARTHRITIS
     Dates: end: 20070901
  3. METHOTREXATE [Concomitant]
  4. PENCICLOVIR [Concomitant]
     Indication: GENITAL HERPES

REACTIONS (1)
  - B-CELL LYMPHOMA [None]
